FAERS Safety Report 22173659 (Version 1)
Quarter: 2023Q2

REPORT INFORMATION
  Report Type: Spontaneous
  Country: CN (occurrence: CN)
  Receive Date: 20230404
  Receipt Date: 20230404
  Transmission Date: 20230721
  Serious: Yes (Hospitalization, Other)
  Sender: FDA-Public Use
  Company Number: CN-PFIZER INC-PV202300059153

PATIENT
  Sex: Female

DRUGS (1)
  1. AVIBACTAM SODIUM\CEFTAZIDIME [Suspect]
     Active Substance: AVIBACTAM SODIUM\CEFTAZIDIME
     Indication: Sepsis
     Dosage: 2.5 G, TID
     Route: 041
     Dates: start: 20230227, end: 20230228

REACTIONS (4)
  - Myelosuppression [Recovering/Resolving]
  - Encephalopathy [Recovering/Resolving]
  - Apathy [Recovering/Resolving]
  - Off label use [Unknown]

NARRATIVE: CASE EVENT DATE: 20230201
